FAERS Safety Report 9918557 (Version 1)
Quarter: 2014Q1

REPORT INFORMATION
  Report Type: Spontaneous
  Country: US (occurrence: US)
  Receive Date: 20140224
  Receipt Date: 20140224
  Transmission Date: 20141002
  Serious: No
  Sender: FDA-Public Use
  Company Number: US-BIOGENIDEC-2014BI015283

PATIENT
  Sex: Female
  Weight: 117 kg

DRUGS (20)
  1. TECFIDERA [Suspect]
     Indication: MULTIPLE SCLEROSIS
     Route: 048
  2. TECFIDERA [Suspect]
     Indication: MULTIPLE SCLEROSIS
     Route: 048
  3. AMPYRA [Concomitant]
  4. PAXEVA [Concomitant]
  5. MYRBETRIQ [Concomitant]
  6. OMEPRAZOLE [Concomitant]
  7. SIMVASTATIN [Concomitant]
  8. FENOFIBRIC [Concomitant]
  9. HYDROCORTISONE [Concomitant]
  10. TERCONAZOLE [Concomitant]
  11. DOXYCLINE [Concomitant]
  12. L-CARNITINE [Concomitant]
  13. ADVIL [Concomitant]
  14. BACLOFEN [Concomitant]
  15. DEPAKOTE [Concomitant]
  16. ECOTRIN [Concomitant]
  17. LUTEIN [Concomitant]
  18. TRILIPIX [Concomitant]
  19. VITAMIN C [Concomitant]
  20. VITAMIN D [Concomitant]

REACTIONS (2)
  - Asthenia [Not Recovered/Not Resolved]
  - Urinary tract infection [Unknown]
